FAERS Safety Report 16171390 (Version 2)
Quarter: 2019Q2

REPORT INFORMATION
  Report Type: Report from Study
  Country: ES (occurrence: ES)
  Receive Date: 20190408
  Receipt Date: 20190415
  Transmission Date: 20190711
  Serious: Yes (Death)
  Sender: FDA-Public Use
  Company Number: ES-PFIZER INC-2019144284

PATIENT

DRUGS (2)
  1. VORICONAZOLE. [Interacting]
     Active Substance: VORICONAZOLE
     Dosage: UNK
  2. PHENYTOIN SODIUM. [Suspect]
     Active Substance: PHENYTOIN SODIUM
     Dosage: UNK

REACTIONS (3)
  - Infection [Fatal]
  - Therapy partial responder [Fatal]
  - Drug interaction [Fatal]
